FAERS Safety Report 20128252 (Version 2)
Quarter: 2021Q4

REPORT INFORMATION
  Report Type: Report from Study
  Country: CA (occurrence: CA)
  Receive Date: 20211129
  Receipt Date: 20211206
  Transmission Date: 20220304
  Serious: Yes (Hospitalization, Other)
  Sender: FDA-Public Use
  Company Number: CA-BRISTOL-MYERS SQUIBB COMPANY-BMS-2021-114608

PATIENT
  Age: 75 Year
  Sex: Male
  Weight: 75.5 kg

DRUGS (6)
  1. NIVOLUMAB [Suspect]
     Active Substance: NIVOLUMAB
     Indication: Pleural mesothelioma
     Dosage: 360 MILLIGRAM, Q3WK
     Route: 042
     Dates: start: 20211018
  2. YERVOY [Suspect]
     Active Substance: IPILIMUMAB
     Indication: Pleural mesothelioma
     Dosage: 1 MILLIGRAM/KILOGRAM, Q6WK
     Route: 042
     Dates: start: 20211018
  3. PREDNISONE [Concomitant]
     Active Substance: PREDNISONE
     Indication: Product used for unknown indication
     Route: 065
  4. ELIQUIS [Concomitant]
     Active Substance: APIXABAN
     Indication: Product used for unknown indication
     Route: 065
  5. PANTOPRAZOLE [Concomitant]
     Active Substance: PANTOPRAZOLE
     Indication: Product used for unknown indication
     Route: 065
  6. VITAMIN B12 [Concomitant]
     Active Substance: CYANOCOBALAMIN
     Indication: Product used for unknown indication
     Route: 065

REACTIONS (13)
  - Diarrhoea [Recovering/Resolving]
  - Dehydration [Unknown]
  - Asthenia [Recovering/Resolving]
  - Loss of consciousness [Unknown]
  - Urinary tract infection [Unknown]
  - Peripheral swelling [Unknown]
  - Cough [Unknown]
  - Rash [Recovering/Resolving]
  - Dyspnoea [Recovering/Resolving]
  - Increased appetite [Unknown]
  - Abdominal pain upper [Unknown]
  - Dyspepsia [Unknown]
  - Pruritus [Recovering/Resolving]

NARRATIVE: CASE EVENT DATE: 20211022
